FAERS Safety Report 14748737 (Version 2)
Quarter: 2020Q2

REPORT INFORMATION
  Report Type: Spontaneous
  Country: US (occurrence: US)
  Receive Date: 20180411
  Receipt Date: 20200508
  Transmission Date: 20200713
  Serious: Yes (Other)
  Sender: FDA-Public Use
  Company Number: US-AMGEN-USASP2017179402

PATIENT
  Age: 47 Year
  Sex: Female

DRUGS (9)
  1. HUMALOG [Concomitant]
     Active Substance: INSULIN LISPRO
  2. LUPRON [Concomitant]
     Active Substance: LEUPROLIDE ACETATE
     Dosage: UNK UNK, QMO
  3. VITAMIN B [Concomitant]
     Active Substance: VITAMIN B
  4. PROLIA [Suspect]
     Active Substance: DENOSUMAB
     Indication: BONE DISORDER
     Dosage: 60 MILLIGRAM, Q6MO
     Route: 065
     Dates: start: 20170509, end: 201906
  5. LISINOPRIL. [Concomitant]
     Active Substance: LISINOPRIL
  6. CEPHALEXIN [CEFALEXIN] [Concomitant]
     Active Substance: CEPHALEXIN
  7. PROLIA [Suspect]
     Active Substance: DENOSUMAB
     Indication: OSTEOPOROSIS
     Dosage: 60 MILLIGRAM, Q6MO
     Route: 065
     Dates: start: 20200427
  8. ANASTRAZOLE DENK [Concomitant]
     Active Substance: ANASTROZOLE
  9. ATORVASTATIN [Concomitant]
     Active Substance: ATORVASTATIN

REACTIONS (13)
  - Cystitis [Unknown]
  - Dysuria [Not Recovered/Not Resolved]
  - Ear infection [Unknown]
  - Abdominal pain upper [Unknown]
  - Tumour marker increased [Unknown]
  - Pyelonephritis [Unknown]
  - Urinary incontinence [Unknown]
  - Feeling abnormal [Unknown]
  - Memory impairment [Unknown]
  - Dehydration [Unknown]
  - Diarrhoea [Unknown]
  - Blood glucose decreased [Unknown]
  - Urinary tract infection [Unknown]

NARRATIVE: CASE EVENT DATE: 2017
